FAERS Safety Report 6139770-3 (Version None)
Quarter: 2009Q2

REPORT INFORMATION
  Report Type: 
  Country: None (occurrence: None)
  Receive Date: 20090401
  Receipt Date: 20090324
  Transmission Date: 20091009
  Serious: Yes (Life-Threatening, Hospitalization, Other)
  Sender: FDA-Public Use
  Company Number: A0770444A

PATIENT
  Age: 47 Year
  Sex: Male
  Weight: 99.5 kg

DRUGS (8)
  1. ARIXTRA [Suspect]
     Dosage: 2.5MG PER DAY
     Route: 058
     Dates: start: 20090220, end: 20090220
  2. ROCEPHIN [Suspect]
     Indication: DRUG USE FOR UNKNOWN INDICATION
  3. LEVAQUIN [Suspect]
     Indication: DRUG USE FOR UNKNOWN INDICATION
  4. MOTRIN [Concomitant]
  5. SOLU-MEDROL [Concomitant]
  6. MUCINEX [Concomitant]
  7. TRENTAL [Concomitant]
  8. TYLENOL [Concomitant]

REACTIONS (3)
  - DISSEMINATED INTRAVASCULAR COAGULATION [None]
  - PLATELET COUNT DECREASED [None]
  - RESPIRATORY DISORDER [None]
